FAERS Safety Report 14125890 (Version 1)
Quarter: 2017Q4

REPORT INFORMATION
  Report Type: Spontaneous
  Country: US (occurrence: US)
  Receive Date: 20171025
  Receipt Date: 20171025
  Transmission Date: 20180321
  Serious: No
  Sender: FDA-Public Use
  Company Number: US-ST. RENATUS-2017STR00038

PATIENT
  Age: 41 Year
  Sex: Male
  Weight: 117.91 kg

DRUGS (1)
  1. KOVANAZE [Suspect]
     Active Substance: OXYMETAZOLINE HYDROCHLORIDE\TETRACAINE HYDROCHLORIDE
     Dosage: 0.2 ML, EVERY 10 MINUTES X 3 DOSES
     Route: 045
     Dates: start: 20170401, end: 20170401

REACTIONS (3)
  - Pain [Recovered/Resolved]
  - Nasal discomfort [Recovered/Resolved]
  - Sleep disorder [Recovered/Resolved]

NARRATIVE: CASE EVENT DATE: 20170401
